FAERS Safety Report 12695481 (Version 4)
Quarter: 2016Q3

REPORT INFORMATION
  Report Type: Spontaneous
  Country: RS (occurrence: RS)
  Receive Date: 20160829
  Receipt Date: 20160929
  Transmission Date: 20161109
  Serious: Yes (Other)
  Sender: FDA-Public Use
  Company Number: RS-GE HEALTHCARE MEDICAL DIAGNOSTICS-VISP-PR-1608S-0502

PATIENT
  Age: 58 Year
  Sex: Male

DRUGS (3)
  1. VISIPAQUE [Suspect]
     Active Substance: IODIXANOL
     Indication: PRODUCT USED FOR UNKNOWN INDICATION
     Dosage: DOSE NOT REPORTED
     Route: 048
     Dates: start: 20160708, end: 20160708
  2. VISIPAQUE [Suspect]
     Active Substance: IODIXANOL
     Indication: OFF LABEL USE
     Dosage: DOSE NOT REPORTED
     Route: 042
     Dates: start: 20160708, end: 20160708
  3. VISIPAQUE [Suspect]
     Active Substance: IODIXANOL
     Indication: DIAGNOSTIC PROCEDURE

REACTIONS (3)
  - Pyrexia [Recovered/Resolved]
  - Off label use [Recovered/Resolved]
  - Chills [Recovered/Resolved]

NARRATIVE: CASE EVENT DATE: 20160708
